FAERS Safety Report 6283417-2 (Version None)
Quarter: 2009Q4

REPORT INFORMATION
  Report Type: 
  Country: None (occurrence: None)
  Receive Date: 20090721
  Receipt Date: 20090721
  Transmission Date: 20100525
  Serious: No
  Sender: FDA-Public Use
  Company Number: None

PATIENT
  Age: 43 Year
  Sex: Female

DRUGS (4)
  1. AUGMENTIN [Suspect]
     Dosage: 875 MG BID
     Dates: start: 20070413, end: 20070422
  2. AUGMENTIN [Suspect]
     Dosage: 875 MG BID
     Dates: start: 20070413, end: 20070423
  3. OMNICAL [Concomitant]
  4. CELEBREX [Concomitant]

REACTIONS (2)
  - HEPATOTOXICITY [None]
  - LIVER INJURY [None]
